FAERS Safety Report 26123935 (Version 1)
Quarter: 2025Q4

REPORT INFORMATION
  Report Type: Report from Study
  Country: US (occurrence: US)
  Receive Date: 20251205
  Receipt Date: 20251205
  Transmission Date: 20260118
  Serious: Yes (Other)
  Sender: ABBVIE
  Company Number: US-ABBVIE-6575127

PATIENT
  Age: 61 Year
  Sex: Male

DRUGS (1)
  1. RINVOQ [Suspect]
     Active Substance: UPADACITINIB
     Indication: Rheumatoid arthritis
     Route: 048
     Dates: start: 2021

REACTIONS (8)
  - Joint injury [Unknown]
  - Arthralgia [Unknown]
  - Glucose tolerance impaired [Unknown]
  - Weight decreased [Unknown]
  - Decreased appetite [Unknown]
  - Meniscus injury [Unknown]
  - Muscle strain [Unknown]
  - Ligament injury [Unknown]

NARRATIVE: CASE EVENT DATE: 20220101
